FAERS Safety Report 4264467-4 (Version None)
Quarter: 2004Q1

REPORT INFORMATION
  Report Type: 
  Country: None (occurrence: None)
  Receive Date: 20040102
  Receipt Date: 20031222
  Transmission Date: 20041129
  Serious: Yes (Death)
  Sender: FDA-Public Use
  Company Number: EM2003-0416

PATIENT
  Age: 61 Year
  Sex: Male

DRUGS (6)
  1. PROLEUKIN [Suspect]
     Indication: RENAL CELL CARCINOMA STAGE UNSPECIFIED
     Dosage: 18 MIU, SUBCUTAN.
     Route: 058
     Dates: end: 20030131
  2. INTERFERON (INTERFERON) [Suspect]
     Indication: RENAL CELL CARCINOMA STAGE UNSPECIFIED
     Dosage: 9MIU
     Dates: end: 20030131
  3. FLUOROURACIL [Suspect]
     Indication: RENAL CELL CARCINOMA STAGE UNSPECIFIED
     Dosage: 2100 MG,
     Dates: end: 20030131
  4. PARACETAMOL (PARACETAMOL) [Concomitant]
  5. METOCLOPRAMIDE [Concomitant]
  6. NOVALGIN (METAMIZOLE SODIUM) [Concomitant]

REACTIONS (4)
  - ATRIAL FIBRILLATION [None]
  - CARDIAC FAILURE ACUTE [None]
  - ELECTROLYTE IMBALANCE [None]
  - PULMONARY OEDEMA [None]
